FAERS Safety Report 11807956 (Version 1)
Quarter: 2015Q4

REPORT INFORMATION
  Report Type: Spontaneous
  Country: TW (occurrence: TW)
  Receive Date: 20151207
  Receipt Date: 20151207
  Transmission Date: 20160305
  Serious: Yes (Life-Threatening, Hospitalization)
  Sender: FDA-Public Use
  Company Number: TW-SHENZHEN TECHDOW PHARMACEUTICAL CO. LTD-TW-2015TEC0000041

PATIENT
  Age: 62 Year
  Sex: Male

DRUGS (5)
  1. HEPARIN SODIUM INJECTION USP, PRESERVATIVE FREE [Suspect]
     Active Substance: HEPARIN SODIUM
     Dosage: 3000 IU, BOLUS
     Route: 042
  2. HEPARIN SODIUM INJECTION USP, PRESERVATIVE FREE [Suspect]
     Active Substance: HEPARIN SODIUM
     Dosage: 3000 IU, BOLUS
     Route: 042
  3. HEPARIN SODIUM INJECTION USP, PRESERVATIVE FREE [Suspect]
     Active Substance: HEPARIN SODIUM
     Dosage: 3000 IU, BOLUS
     Route: 016
  4. CLOPIDOGREL [Concomitant]
     Active Substance: CLOPIDOGREL BISULFATE
     Indication: PRODUCT USED FOR UNKNOWN INDICATION
  5. HEPARIN SODIUM INJECTION USP, PRESERVATIVE FREE [Suspect]
     Active Substance: HEPARIN SODIUM
     Indication: PRODUCT USED FOR UNKNOWN INDICATION
     Dosage: 8000 IU, BOLUS
     Route: 042

REACTIONS (9)
  - Cardiac arrest [Recovered/Resolved]
  - Heparin resistance [Recovered/Resolved]
  - Vascular stent occlusion [None]
  - Bradycardia [Recovered/Resolved]
  - Antithrombin III deficiency [Recovered/Resolved]
  - Coronary artery occlusion [None]
  - Vascular stent thrombosis [Recovered/Resolved]
  - Coronary artery thrombosis [None]
  - Hyperhidrosis [Recovered/Resolved]
